FAERS Safety Report 8187692-9 (Version None)
Quarter: 2012Q1

REPORT INFORMATION
  Report Type: 
  Country: None (occurrence: None)
  Receive Date: 20120306
  Receipt Date: 20120124
  Transmission Date: 20120608
  Serious: No
  Sender: FDA-Public Use
  Company Number: US-GLAXOSMITHKLINE-A0851154A

PATIENT
  Age: 21 Year
  Sex: Female

DRUGS (4)
  1. LAMOTRIGINE [Suspect]
     Indication: CONVULSION
     Route: 048
  2. LAMICTAL [Suspect]
     Indication: CONVULSION
     Dosage: 200MG TWICE PER DAY
     Route: 048
     Dates: start: 20090701
  3. ALBUTEROL [Concomitant]
  4. BIRTH CONTROL PILL [Concomitant]

REACTIONS (3)
  - ADVERSE DRUG REACTION [None]
  - AMNESIA [None]
  - CONFUSIONAL STATE [None]
